FAERS Safety Report 20048100 (Version 1)
Quarter: 2021Q4

REPORT INFORMATION
  Report Type: Report from Study
  Country: None (occurrence: BR)
  Receive Date: 20211109
  Receipt Date: 20211109
  Transmission Date: 20220303
  Serious: Yes (Other)
  Sender: FDA-Public Use
  Company Number: 2021IS001803

PATIENT
  Age: 73 Year
  Sex: Male

DRUGS (8)
  1. TEGSEDI [Suspect]
     Active Substance: INOTERSEN SODIUM
     Indication: Hereditary neuropathic amyloidosis
     Route: 065
     Dates: start: 201512
  2. DEVICE [Suspect]
     Active Substance: DEVICE
  3. VITAMIN A /00056001/ (RETINOL) [Concomitant]
     Route: 065
  4. VITAMIN C /00008001/(ASCORBIC ACID) [Concomitant]
     Route: 065
  5. EUPROSTATIN (DOXAZOSIN MESILATE) [Concomitant]
     Route: 065
  6. PURAN T4 (LEVOTHYROXINE SODIUM) [Concomitant]
     Route: 065
  7. ROSUVASTATIN CALCIUM [Concomitant]
     Active Substance: ROSUVASTATIN CALCIUM
     Route: 065
  8. HYLO GEL (HYALURONATE SODIUM) [Concomitant]
     Route: 047

REACTIONS (1)
  - Lenticular opacities [Not Recovered/Not Resolved]

NARRATIVE: CASE EVENT DATE: 20211014
